FAERS Safety Report 7648803-4 (Version None)
Quarter: 2011Q3

REPORT INFORMATION
  Report Type: 
  Country: None (occurrence: None)
  Receive Date: 20110801
  Receipt Date: 20110729
  Transmission Date: 20111222
  Serious: Yes (Death)
  Sender: FDA-Public Use
  Company Number: PHFR2011GB04243

PATIENT
  Sex: Male

DRUGS (6)
  1. SIMVASTATIN [Concomitant]
     Dosage: 40 MG/DAY
     Route: 048
  2. SERTRALINE HYDROCHLORIDE [Concomitant]
     Indication: CONVULSION
     Dosage: 200 MG/DAY
     Route: 048
  3. VALPROATE SODIUM [Concomitant]
     Indication: CONVULSION
     Dosage: 600 MG/DAY
  4. ASPIRIN [Concomitant]
     Dosage: 75 MG/DAY
     Route: 048
  5. CLOZAPINE [Suspect]
     Indication: SCHIZOPHRENIA
     Dosage: 350 MG/DAY
     Route: 048
     Dates: start: 20070514
  6. SULPIRIDE [Concomitant]
     Indication: CONVULSION
     Dosage: 400 MG/DAY
     Route: 048

REACTIONS (1)
  - DEATH [None]
